FAERS Safety Report 18483836 (Version 1)
Quarter: 2020Q4

REPORT INFORMATION
  Report Type: Spontaneous
  Country: GB (occurrence: GB)
  Receive Date: 20201110
  Receipt Date: 20201110
  Transmission Date: 20210114
  Serious: Yes (Other)
  Sender: FDA-Public Use
  Company Number: GB-MICRO LABS LIMITED-ML2020-03338

PATIENT
  Age: 43 Year
  Sex: Female
  Weight: 63.04 kg

DRUGS (2)
  1. CLINDAMYCIN. [Suspect]
     Active Substance: CLINDAMYCIN
     Indication: WOUND TREATMENT
     Dosage: 150 FOR 2 DAYS THEN 300 FOR 5 DAYS
     Route: 048
     Dates: start: 20200811, end: 20200818
  2. WARFARIN [Concomitant]
     Active Substance: WARFARIN

REACTIONS (10)
  - Heart rate increased [Recovered/Resolved]
  - Ear swelling [Recovered/Resolved]
  - Mucous stools [Unknown]
  - Abnormal loss of weight [Unknown]
  - Renal impairment [Unknown]
  - Rash [Recovered/Resolved]
  - Inflammatory bowel disease [Not Recovered/Not Resolved]
  - Diarrhoea [Unknown]
  - Swelling face [Recovered/Resolved]
  - Dyspepsia [Unknown]

NARRATIVE: CASE EVENT DATE: 20200821
